FAERS Safety Report 10470757 (Version 5)
Quarter: 2015Q3

REPORT INFORMATION
  Report Type: Spontaneous
  Country: US (occurrence: US)
  Receive Date: 20140923
  Receipt Date: 20150716
  Transmission Date: 20151125
  Serious: Yes (Other)
  Sender: FDA-Public Use
  Company Number: US-009507513-1409USA010695

PATIENT
  Sex: Male
  Weight: 61.22 kg

DRUGS (3)
  1. JANUMET [Suspect]
     Active Substance: METFORMIN HYDROCHLORIDE\SITAGLIPTIN PHOSPHATE
     Indication: TYPE 2 DIABETES MELLITUS
     Dosage: 50-500 MG, BID
     Route: 048
     Dates: start: 20090629, end: 20140527
  2. JANUMET [Suspect]
     Active Substance: METFORMIN HYDROCHLORIDE\SITAGLIPTIN PHOSPHATE
     Dosage: 100MG BID
     Route: 048
     Dates: start: 2009
  3. JANUMET [Suspect]
     Active Substance: METFORMIN HYDROCHLORIDE\SITAGLIPTIN PHOSPHATE
     Dosage: 50-1000 MG, BID
     Route: 048
     Dates: start: 20090629, end: 20140310

REACTIONS (17)
  - Surgery [Unknown]
  - Pancreatic cyst [Unknown]
  - Hernia repair [Unknown]
  - Dysphagia [Recovering/Resolving]
  - Constipation [Unknown]
  - Gastrooesophageal reflux disease [Unknown]
  - Drug hypersensitivity [Unknown]
  - Asthenia [Unknown]
  - Pancreatic carcinoma metastatic [Unknown]
  - Metastases to liver [Unknown]
  - Skin cancer [Unknown]
  - Nephrolithiasis [Unknown]
  - Chronic gastritis [Not Recovered/Not Resolved]
  - Prostatectomy [Unknown]
  - Inappropriate schedule of drug administration [Unknown]
  - Thrombosis [Unknown]
  - Diabetic neuropathy [Unknown]

NARRATIVE: CASE EVENT DATE: 2009
